APPROVED DRUG PRODUCT: SIPONIMOD
Active Ingredient: SIPONIMOD
Strength: EQ 2MG BASE
Dosage Form/Route: TABLET;ORAL
Application: A218444 | Product #003
Applicant: RICONPHARMA LLC
Approved: Apr 22, 2025 | RLD: No | RS: No | Type: DISCN